FAERS Safety Report 5712344-1 (Version None)
Quarter: 2008Q2

REPORT INFORMATION
  Report Type: 
  Country: None (occurrence: None)
  Receive Date: 20080421
  Receipt Date: 20080421
  Transmission Date: 20081010
  Serious: No
  Sender: FDA-Public Use
  Company Number: None

PATIENT
  Age: 62 Year
  Sex: Male
  Weight: 79.3795 kg

DRUGS (2)
  1. ALEVE [Suspect]
     Indication: IMMOBILE
     Dosage: 1  1 OR 2/ DAY  PO
     Route: 048
     Dates: start: 20080415, end: 20080419
  2. ALEVE [Suspect]
     Indication: SPINAL DISORDER
     Dosage: 1  1 OR 2/ DAY  PO
     Route: 048
     Dates: start: 20080415, end: 20080419

REACTIONS (5)
  - BLOOD PRESSURE INCREASED [None]
  - FALL [None]
  - HEART RATE INCREASED [None]
  - INTERVERTEBRAL DISC PROTRUSION [None]
  - PHARMACEUTICAL PRODUCT COMPLAINT [None]
